FAERS Safety Report 5733162-4 (Version None)
Quarter: 2008Q2

REPORT INFORMATION
  Report Type: 
  Country: None (occurrence: None)
  Receive Date: 20080509
  Receipt Date: 20080505
  Transmission Date: 20081010
  Serious: Yes (Hospitalization)
  Sender: FDA-Public Use
  Company Number: DE-ASTRAZENECA-2008SE02301

PATIENT
  Age: 25071 Day
  Sex: Male

DRUGS (5)
  1. ATACAND [Suspect]
     Route: 048
     Dates: start: 20080419, end: 20080419
  2. PANTOPRAZOLE SODIUM [Suspect]
     Route: 048
     Dates: start: 20080419, end: 20080419
  3. LORAZEPAM [Suspect]
     Route: 048
     Dates: start: 20080419, end: 20080419
  4. NOVALDIN INJ [Suspect]
     Route: 048
     Dates: start: 20080419, end: 20080419
  5. REMERGIL [Suspect]
     Route: 048
     Dates: start: 20080419, end: 20080419

REACTIONS (6)
  - BRADYCARDIA [None]
  - DEHYDRATION [None]
  - HYPOTENSION [None]
  - OVERDOSE [None]
  - SOPOR [None]
  - SUICIDE ATTEMPT [None]
